FAERS Safety Report 10310130 (Version 1)
Quarter: 2014Q3

REPORT INFORMATION
  Report Type: Spontaneous
  Country: US (occurrence: None)
  Receive Date: 20140715
  Receipt Date: 20140715
  Transmission Date: 20150326
  Serious: No
  Sender: FDA-Public Use
  Company Number: None

PATIENT
  Age: 50 Year
  Sex: Female
  Weight: 103.42 kg

DRUGS (1)
  1. SULFAMETHOXAZOLE-TMP [Suspect]
     Active Substance: SULFAMETHOXAZOLE\TRIMETHOPRIM
     Indication: BACTERIAL INFECTION
     Dosage: TAKEN BY MOUTH
     Route: 048
     Dates: start: 20140707, end: 20140714

REACTIONS (8)
  - Dry mouth [None]
  - Glossodynia [None]
  - Gingival pain [None]
  - Tongue discolouration [None]
  - Oropharyngeal pain [None]
  - Oral pain [None]
  - Tongue disorder [None]
  - Dysgeusia [None]

NARRATIVE: CASE EVENT DATE: 20140707
